FAERS Safety Report 15438533 (Version 1)
Quarter: 2018Q3

REPORT INFORMATION
  Report Type: Spontaneous
  Country: US (occurrence: US)
  Receive Date: 20180924
  Receipt Date: 20180924
  Transmission Date: 20181010
  Serious: Yes (Disabling, Other)
  Sender: FDA-Public Use
  Company Number: None

PATIENT
  Age: 68 Year
  Sex: Female
  Weight: 67.5 kg

DRUGS (8)
  1. WALKER [Concomitant]
  2. FISH OIL  OMEGA?3 [Concomitant]
  3. EQUATE ONE DAILY MULTIVITAMIN MULTIMINERAL SUPPLEMENT [Concomitant]
  4. VITAMIN D3 [Concomitant]
     Active Substance: CHOLECALCIFEROL
  5. PROBIOTIC [Concomitant]
     Active Substance: PROBIOTICS NOS
  6. CIPROFLOXACIN. [Suspect]
     Active Substance: CIPROFLOXACIN
     Indication: COLITIS
     Dosage: ?          QUANTITY:1 CAN^T REMEMBER;?
     Route: 048
     Dates: start: 20161221, end: 20161224
  7. CIPROFLOXACIN. [Suspect]
     Active Substance: CIPROFLOXACIN
     Indication: DIVERTICULUM
     Dosage: ?          QUANTITY:1 CAN^T REMEMBER;?
     Route: 048
     Dates: start: 20161221, end: 20161224
  8. LUTEIN 20MG [Concomitant]

REACTIONS (11)
  - Loss of personal independence in daily activities [None]
  - Muscular weakness [None]
  - Walking aid user [None]
  - Lip swelling [None]
  - Urticaria [None]
  - Musculoskeletal stiffness [None]
  - Peripheral coldness [None]
  - Weight bearing difficulty [None]
  - Dysstasia [None]
  - Pain in extremity [None]
  - Hypoaesthesia [None]

NARRATIVE: CASE EVENT DATE: 20161222
